FAERS Safety Report 7131328-2 (Version None)
Quarter: 2010Q4

REPORT INFORMATION
  Report Type: 
  Country: None (occurrence: None)
  Receive Date: 20101124
  Receipt Date: 20101124
  Transmission Date: 20110411
  Serious: Yes (Hospitalization)
  Sender: FDA-Public Use
  Company Number: None

PATIENT
  Sex: Male
  Weight: 70 kg

DRUGS (2)
  1. CISPLATIN [Suspect]
     Dosage: 81 MG
     Dates: end: 20100331
  2. TAXOTERE [Suspect]
     Dosage: 108 MG
     Dates: end: 20100331

REACTIONS (4)
  - BLOOD POTASSIUM DECREASED [None]
  - BLOOD SODIUM DECREASED [None]
  - NAUSEA [None]
  - VOMITING [None]
